FAERS Safety Report 9187734 (Version 2)
Quarter: 2013Q2

REPORT INFORMATION
  Report Type: Spontaneous
  Country: IT (occurrence: IT)
  Receive Date: 20130325
  Receipt Date: 20130430
  Transmission Date: 20140414
  Serious: Yes (Death, Hospitalization)
  Sender: FDA-Public Use
  Company Number: IT-TEVA-392872ISR

PATIENT
  Age: 78 Year
  Sex: Male

DRUGS (3)
  1. METFORMIN [Suspect]
     Indication: DIABETES MELLITUS
     Dosage: 3 GRAM DAILY;
     Route: 048
     Dates: start: 20120101, end: 20130128
  2. ENAPREN [Concomitant]
  3. ACIDO ACETILSALICILICO [Concomitant]

REACTIONS (5)
  - Lactic acidosis [Fatal]
  - Prerenal failure [Fatal]
  - Drug abuse [Fatal]
  - Cardiac failure [Fatal]
  - Multi-organ failure [Fatal]
